FAERS Safety Report 12963321 (Version 1)
Quarter: 2016Q4

REPORT INFORMATION
  Report Type: Spontaneous
  Country: BR (occurrence: BR)
  Receive Date: 20161122
  Receipt Date: 20161122
  Transmission Date: 20170207
  Serious: Yes (Other)
  Sender: FDA-Public Use
  Company Number: BR-NOVEN PHARMACEUTICALS, INC.-BR2016002722

PATIENT

DRUGS (1)
  1. ESTRADIOL/NORETHISTERONE ACETATE [Suspect]
     Active Substance: ESTRADIOL\NORETHINDRONE ACETATE
     Indication: HORMONE THERAPY
     Dosage: 8 DF (50/140 MCG) ON MONDAY AND THURSDAY
     Route: 062

REACTIONS (5)
  - Prescription drug used without a prescription [Recovered/Resolved]
  - Palpitations [Recovered/Resolved]
  - Blood pressure increased [Recovered/Resolved]
  - Malaise [Recovered/Resolved]
  - Depression [Recovered/Resolved]
